FAERS Safety Report 7971284-8 (Version None)
Quarter: 2011Q4

REPORT INFORMATION
  Report Type: 
  Country: None (occurrence: None)
  Receive Date: 20111212
  Receipt Date: 20110413
  Transmission Date: 20120403
  Serious: No
  Sender: FDA-Public Use
  Company Number: US-BRISTOL-MYERS SQUIBB COMPANY-15671381

PATIENT
  Age: 44 Year
  Sex: Female

DRUGS (2)
  1. IXEMPRA KIT [Suspect]
     Dosage: SECOND INFUSION
  2. XELODA [Suspect]

REACTIONS (1)
  - PAIN [None]
